FAERS Safety Report 11231188 (Version 1)
Quarter: 2015Q2

REPORT INFORMATION
  Report Type: Spontaneous
  Country: US (occurrence: None)
  Receive Date: 20150629
  Receipt Date: 20150629
  Transmission Date: 20150821
  Serious: Yes (Life-Threatening)
  Sender: FDA-Public Use
  Company Number: None

PATIENT
  Age: 39 Year
  Sex: Female
  Weight: 63.05 kg

DRUGS (5)
  1. BENADRYL [Concomitant]
     Active Substance: DIPHENHYDRAMINE HYDROCHLORIDE
  2. ALBUTEROL INHALER [Concomitant]
     Active Substance: ALBUTEROL
  3. MULTI VITAMIN [Concomitant]
     Active Substance: VITAMINS
  4. ABILIFY [Suspect]
     Active Substance: ARIPIPRAZOLE
     Indication: DRUG THERAPY
     Dosage: 1 OVAL PILL 1 TIME
     Route: 048
  5. LITHIUM. [Concomitant]
     Active Substance: LITHIUM

REACTIONS (5)
  - Hyperhidrosis [None]
  - Hearing impaired [None]
  - Visual impairment [None]
  - Feeling cold [None]
  - Cardio-respiratory arrest [None]

NARRATIVE: CASE EVENT DATE: 20140503
